FAERS Safety Report 21728505 (Version 1)
Quarter: 2022Q4

REPORT INFORMATION
  Report Type: Spontaneous
  Country: JP (occurrence: JP)
  Receive Date: 20221214
  Receipt Date: 20221214
  Transmission Date: 20230113
  Serious: Yes (Other)
  Sender: FDA-Public Use
  Company Number: JP-PFIZER INC-PV202200120727

PATIENT
  Age: 71 Year
  Sex: Female

DRUGS (2)
  1. INLYTA [Suspect]
     Active Substance: AXITINIB
     Dosage: 5 MG, 2X/DAY
  2. BAVENCIO [Suspect]
     Active Substance: AVELUMAB
     Indication: Renal cancer
     Dosage: UNK

REACTIONS (4)
  - Hypothyroidism [Recovering/Resolving]
  - Hepatic function abnormal [Recovering/Resolving]
  - Blood pressure systolic increased [Recovering/Resolving]
  - Palmar-plantar erythrodysaesthesia syndrome [Recovering/Resolving]
